FAERS Safety Report 8973168 (Version 2)
Quarter: 2013Q4

REPORT INFORMATION
  Report Type: Spontaneous
  Country: GB (occurrence: GB)
  Receive Date: 20121219
  Receipt Date: 20131015
  Transmission Date: 20140711
  Serious: Yes (Hospitalization)
  Sender: FDA-Public Use
  Company Number: GB-MYLANLABS-2012S1025259

PATIENT
  Age: 63 Year
  Sex: Male

DRUGS (8)
  1. CITALOPRAM [Suspect]
     Indication: PANIC DISORDER
     Route: 048
     Dates: start: 20121109, end: 20121120
  2. QUETIAPINE [Suspect]
     Indication: AGITATION
     Route: 048
     Dates: start: 20120910, end: 20121120
  3. QUETIAPINE [Suspect]
     Indication: HALLUCINATION
     Route: 048
     Dates: start: 20120910, end: 20121120
  4. CO-CARELDOPA [Concomitant]
     Indication: PRODUCT USED FOR UNKNOWN INDICATION
  5. MADOPAR [Concomitant]
     Indication: PRODUCT USED FOR UNKNOWN INDICATION
  6. NOVOMIX [Concomitant]
     Indication: PRODUCT USED FOR UNKNOWN INDICATION
  7. SIMVASTATIN [Concomitant]
     Indication: PRODUCT USED FOR UNKNOWN INDICATION
  8. STALEVO [Concomitant]
     Indication: PRODUCT USED FOR UNKNOWN INDICATION

REACTIONS (4)
  - Hyponatraemia [Recovering/Resolving]
  - Orthostatic hypotension [Recovering/Resolving]
  - Treatment noncompliance [Unknown]
  - Hallucination [Unknown]
